FAERS Safety Report 20622803 (Version 2)
Quarter: 2023Q1

REPORT INFORMATION
  Report Type: Spontaneous
  Country: US (occurrence: US)
  Receive Date: 20220322
  Receipt Date: 20230322
  Transmission Date: 20230417
  Serious: No
  Sender: FDA-Public Use
  Company Number: US-ALLERGAN-2201659US

PATIENT
  Sex: Female

DRUGS (3)
  1. LATISSE [Suspect]
     Active Substance: BIMATOPROST
     Indication: Growth of eyelashes
     Dosage: ONE DROP ON STICK ON EACH EYE
  2. LATISSE [Suspect]
     Active Substance: BIMATOPROST
     Dosage: UNK
     Dates: start: 2002, end: 20220503
  3. LATISSE [Suspect]
     Active Substance: BIMATOPROST
     Dosage: UNK

REACTIONS (7)
  - Inappropriate schedule of product administration [Unknown]
  - Crying [Unknown]
  - Accidental exposure to product [Unknown]
  - Eye irritation [Recovered/Resolved]
  - Ocular hyperaemia [Recovered/Resolved]
  - Drug ineffective [Unknown]
  - Product quality issue [Unknown]
